FAERS Safety Report 25554040 (Version 1)
Quarter: 2025Q3

REPORT INFORMATION
  Report Type: Report from Study
  Country: US (occurrence: US)
  Receive Date: 20250715
  Receipt Date: 20250715
  Transmission Date: 20251021
  Serious: Yes (Death, Other)
  Sender: RANBAXY
  Company Number: US-SUN PHARMACEUTICAL INDUSTRIES LTD-2025R1-516788

PATIENT
  Sex: Male

DRUGS (4)
  1. AMINOPHYLLINE [Suspect]
     Active Substance: AMINOPHYLLINE
     Indication: Capillary leak syndrome
     Route: 065
  2. NOREPINEPHRINE BITARTRATE [Suspect]
     Active Substance: NOREPINEPHRINE BITARTRATE
     Indication: Capillary leak syndrome
     Route: 065
  3. METHYLPREDNISOLONE [Suspect]
     Active Substance: METHYLPREDNISOLONE
     Indication: Capillary leak syndrome
     Route: 065
  4. VASOPRESSIN [Suspect]
     Active Substance: VASOPRESSIN
     Indication: Capillary leak syndrome
     Route: 065

REACTIONS (1)
  - Respiratory failure [Fatal]
